FAERS Safety Report 4629986-7 (Version None)
Quarter: 2005Q2

REPORT INFORMATION
  Report Type: 
  Country: None (occurrence: None)
  Receive Date: 20050408
  Receipt Date: 20050317
  Transmission Date: 20051028
  Serious: Yes (Other)
  Sender: FDA-Public Use
  Company Number: US-GLAXOSMITHKLINE-A0550188A

PATIENT
  Age: 37 Year
  Sex: Female

DRUGS (1)
  1. NICORETTE (MINT) [Suspect]
     Route: 002
     Dates: start: 20050209, end: 20050224

REACTIONS (2)
  - CORNEAL OEDEMA [None]
  - VISION BLURRED [None]
